FAERS Safety Report 5269599-X (Version None)
Quarter: 2007Q1

REPORT INFORMATION
  Report Type: 
  Country: None (occurrence: None)
  Receive Date: 20070314
  Receipt Date: 20070301
  Transmission Date: 20070707
  Serious: Yes (Other)
  Sender: FDA-Public Use
  Company Number: 2006SP007458

PATIENT
  Age: 19 Year
  Sex: Male

DRUGS (5)
  1. NOXAFIL [Suspect]
     Indication: PROPHYLAXIS
     Dosage: 400 MG; BID; PO
     Route: 048
     Dates: start: 20060928, end: 20061126
  2. AMBISOME [Suspect]
     Indication: ASPERGILLOSIS
     Dosage: 200 MG; QD
     Dates: start: 20061107, end: 20061125
  3. VORICONAZOLE [Concomitant]
  4. STEROIDS [Concomitant]
  5. CASPOFUNGIN [Concomitant]

REACTIONS (7)
  - ABSCESS FUNGAL [None]
  - ASPERGILLOSIS [None]
  - CATHETER SITE INFECTION [None]
  - NEPHROPATHY TOXIC [None]
  - RENAL ABSCESS [None]
  - RENAL FAILURE ACUTE [None]
  - STAPHYLOCOCCAL INFECTION [None]
